FAERS Safety Report 7152508-6 (Version None)
Quarter: 2010Q4

REPORT INFORMATION
  Report Type: 
  Country: None (occurrence: None)
  Receive Date: 20101213
  Receipt Date: 20101206
  Transmission Date: 20110411
  Serious: No
  Sender: FDA-Public Use
  Company Number: US-PFIZER INC-2010165627

PATIENT
  Sex: Female
  Weight: 136 kg

DRUGS (10)
  1. CHANTIX [Suspect]
     Indication: SMOKING CESSATION THERAPY
     Dosage: 0.5MG
     Route: 048
  2. CHANTIX [Suspect]
     Dosage: 1MG
  3. TRAZODONE [Concomitant]
     Indication: SLEEP DISORDER
     Dosage: 100 MG, 1X/DAY
     Route: 048
     Dates: start: 20080101
  4. SIMVASTATIN [Concomitant]
     Indication: BLOOD CHOLESTEROL INCREASED
     Dosage: 20 MG, 1X/DAY
     Route: 048
  5. METOPROLOL TARTRATE [Concomitant]
     Indication: TACHYCARDIA
     Dosage: 25MG
     Route: 048
  6. CYCLOBENZAPRINE [Concomitant]
     Indication: PLEURITIC PAIN
     Dosage: 10 MG, 1X/DAY
     Route: 048
     Dates: start: 20040101
  7. ABILIFY [Concomitant]
     Indication: MAJOR DEPRESSION
     Dosage: 5 MG, 1X/DAY
     Route: 048
  8. FLUOXETINE [Concomitant]
     Indication: DEPRESSION
     Dosage: 60 MG, 1X/DAY
     Route: 048
     Dates: start: 20030101
  9. ACETYLSALICYLIC ACID [Concomitant]
     Indication: CARDIAC DISORDER
     Dosage: 81 MG, 1X/DAY
     Route: 048
  10. MULTI-VITAMINS [Concomitant]
     Dosage: UNK

REACTIONS (5)
  - AMENORRHOEA [None]
  - HOT FLUSH [None]
  - HYPERHIDROSIS [None]
  - NAUSEA [None]
  - WEIGHT INCREASED [None]
